FAERS Safety Report 8771141 (Version 1)
Quarter: 2012Q4

REPORT INFORMATION
  Report Type: 
  Country: DE (occurrence: DE)
  Receive Date: 20120906
  Receipt Date: 20120906
  Transmission Date: 20130627
  Serious: Yes (Hospitalization)
  Sender: FDA-Public Use
  Company Number: DE-ROCHE-1116918

PATIENT
  Age: 83 Year
  Sex: Female

DRUGS (5)
  1. LUCENTIS [Suspect]
     Indication: AGE-RELATED MACULAR DEGENERATION
     Route: 050
     Dates: start: 20120315, end: 20120524
  2. TRIMIPRAMINE [Concomitant]
     Route: 065
  3. METFORMIN [Concomitant]
     Route: 065
  4. RIVOTRIL [Concomitant]
     Dosage: drop
     Route: 065
  5. VALSARTAN [Concomitant]
     Route: 065

REACTIONS (1)
  - Gait disturbance [Recovering/Resolving]
